FAERS Safety Report 8272532-X (Version None)
Quarter: 2012Q2

REPORT INFORMATION
  Report Type: 
  Country: None (occurrence: None)
  Receive Date: 20120410
  Receipt Date: 20120402
  Transmission Date: 20120825
  Serious: Yes (Other)
  Sender: FDA-Public Use
  Company Number: GB-ROCHE-787350

PATIENT
  Age: 20 Year
  Sex: Male

DRUGS (5)
  1. MYCOPHENOLATE MOFETIL [Suspect]
     Route: 065
  2. PREDNISOLONE [Suspect]
     Route: 065
  3. TACROLIMUS [Suspect]
     Indication: RENAL TRANSPLANT
     Route: 065
  4. MYCOPHENOLATE MOFETIL [Suspect]
     Indication: RENAL TRANSPLANT
     Dosage: DOSE INCREASED
     Route: 065
  5. PREDNISOLONE [Suspect]
     Indication: RENAL TRANSPLANT
     Dosage: DOSE INCREASED
     Route: 065

REACTIONS (4)
  - CUSHINGOID [None]
  - SKIN PAPILLOMA [None]
  - TUBULOINTERSTITIAL NEPHRITIS AND UVEITIS SYNDROME [None]
  - DRUG INEFFECTIVE [None]
